FAERS Safety Report 4886051-1 (Version None)
Quarter: 2006Q1

REPORT INFORMATION
  Report Type: 
  Country: None (occurrence: None)
  Receive Date: 20060117
  Receipt Date: 20051229
  Transmission Date: 20060701
  Serious: Yes (Hospitalization)
  Sender: FDA-Public Use
  Company Number: BR-2005-007294

PATIENT
  Age: 20 Year
  Sex: Male

DRUGS (3)
  1. BETASERON [Suspect]
     Indication: MULTIPLE SCLEROSIS
     Dosage: 8 MIU, EVERY 2D, SUBCUTANEOUS
     Route: 058
     Dates: start: 20030819
  2. CALCINOL [Concomitant]
  3. VITAMINS [Concomitant]

REACTIONS (15)
  - APHASIA [None]
  - ASTHENIA [None]
  - BLINDNESS TRANSIENT [None]
  - CATHETER RELATED INFECTION [None]
  - CHEST PAIN [None]
  - DEPRESSION [None]
  - ESCHAR [None]
  - INJECTION SITE MASS [None]
  - MUSCLE RIGIDITY [None]
  - OEDEMA PERIPHERAL [None]
  - PAIN IN EXTREMITY [None]
  - PYREXIA [None]
  - TREMOR [None]
  - URINARY TRACT INFECTION [None]
  - WEIGHT DECREASED [None]
